FAERS Safety Report 4413335-3 (Version None)
Quarter: 2004Q3

REPORT INFORMATION
  Report Type: 
  Country: None (occurrence: None)
  Receive Date: 20040802
  Receipt Date: 20040722
  Transmission Date: 20050211
  Serious: Yes (Other)
  Sender: FDA-Public Use
  Company Number: JP-BRISTOL-MYERS SQUIBB COMPANY-12649208

PATIENT
  Age: 68 Year
  Sex: Male

DRUGS (3)
  1. MITOMYCIN [Suspect]
     Indication: BILE DUCT CANCER
     Route: 013
  2. FLUOROURACIL [Suspect]
     Indication: BILE DUCT CANCER
     Route: 013
  3. EPIRUBICIN [Suspect]
     Indication: BILE DUCT CANCER
     Route: 040

REACTIONS (2)
  - ACUTE MYELOID LEUKAEMIA [None]
  - TREATMENT RELATED SECONDARY MALIGNANCY [None]
